FAERS Safety Report 6463758-6 (Version None)
Quarter: 2009Q4

REPORT INFORMATION
  Report Type: 
  Country: None (occurrence: None)
  Receive Date: 20091201
  Receipt Date: 20091125
  Transmission Date: 20100525
  Serious: Yes (Death)
  Sender: FDA-Public Use
  Company Number: JP-JNJFOC-20091107894

PATIENT
  Sex: Female

DRUGS (3)
  1. DOXORUBICIN HCL [Suspect]
     Route: 042
  2. DOXORUBICIN HCL [Suspect]
     Route: 042
  3. DOXORUBICIN HCL [Suspect]
     Indication: OVARIAN CANCER RECURRENT
     Route: 042

REACTIONS (2)
  - INFECTION [None]
  - STEVENS-JOHNSON SYNDROME [None]
